FAERS Safety Report 7639288-2 (Version None)
Quarter: 2011Q3

REPORT INFORMATION
  Report Type: 
  Country: None (occurrence: None)
  Receive Date: 20110727
  Receipt Date: 20110722
  Transmission Date: 20111222
  Serious: Yes (Other)
  Sender: FDA-Public Use
  Company Number: GB-MERCK-1010GBR00031

PATIENT
  Age: 69 Year
  Sex: Male

DRUGS (4)
  1. INSULIN [Concomitant]
     Route: 065
     Dates: start: 20030101
  2. METFORMIN HYDROCHLORIDE [Concomitant]
     Indication: DIABETES MELLITUS
     Route: 048
     Dates: start: 20020101
  3. COZAAR [Suspect]
     Indication: ALBUMINURIA
     Route: 065
     Dates: start: 20080401, end: 20100601
  4. COZAAR [Suspect]
     Indication: HYPERTENSION
     Route: 065
     Dates: start: 20080401, end: 20100601

REACTIONS (4)
  - DIARRHOEA [None]
  - DEAFNESS [None]
  - ABDOMINAL PAIN [None]
  - MALAISE [None]
